FAERS Safety Report 21351020 (Version 1)
Quarter: 2022Q3

REPORT INFORMATION
  Report Type: Spontaneous
  Country: US (occurrence: US)
  Receive Date: 20220919
  Receipt Date: 20220919
  Transmission Date: 20221027
  Serious: No
  Sender: FDA-Public Use
  Company Number: US-SA-SAC20220915000674

PATIENT

DRUGS (1)
  1. LANTUS [Suspect]
     Active Substance: INSULIN GLARGINE
     Dosage: UNK
     Route: 065

REACTIONS (5)
  - Injection site erythema [Unknown]
  - Hypoglycaemia [Unknown]
  - Hyperglycaemia [Unknown]
  - Injection site pain [Unknown]
  - Skin irritation [Unknown]
